FAERS Safety Report 5390988-7 (Version None)
Quarter: 2007Q3

REPORT INFORMATION
  Report Type: 
  Country: None (occurrence: None)
  Receive Date: 20070716
  Receipt Date: 20060613
  Transmission Date: 20080115
  Serious: Yes (Hospitalization)
  Sender: FDA-Public Use
  Company Number: MPS1-10549

PATIENT
  Age: 3 Year
  Sex: Female

DRUGS (3)
  1. ALDURAZYME [Suspect]
     Indication: MUCOPOLYSACCHARIDOSIS I
  2. XOPENEX [Concomitant]
  3. PULMICORT [Concomitant]

REACTIONS (5)
  - INFECTION [None]
  - INTRACRANIAL PRESSURE INCREASED [None]
  - MOBILITY DECREASED [None]
  - RESPIRATORY DISTRESS [None]
  - WHITE BLOOD CELL COUNT INCREASED [None]
